FAERS Safety Report 4616000-2 (Version None)
Quarter: 2005Q1

REPORT INFORMATION
  Report Type: 
  Country: None (occurrence: None)
  Receive Date: 20050323
  Receipt Date: 20050307
  Transmission Date: 20050727
  Serious: Yes (Hospitalization, Disabling)
  Sender: FDA-Public Use
  Company Number: JP-JNJFOC-20040700641

PATIENT
  Sex: Male
  Weight: 48 kg

DRUGS (6)
  1. REMICADE [Suspect]
     Indication: CROHN'S DISEASE
     Route: 042
  2. LEUKERIN [Suspect]
     Indication: CROHN'S DISEASE
     Route: 049
  3. PENTASA [Concomitant]
     Dosage: 2250-3000 MG
     Route: 049
  4. PENTASA [Concomitant]
     Indication: CROHN'S DISEASE
     Dosage: 2250-3000 MG
     Route: 049
  5. ELENTAL [Concomitant]
  6. ELENTAL [Concomitant]
     Dosage: 1-7 SACHET

REACTIONS (3)
  - EYE INFECTION FUNGAL [None]
  - INFECTIVE SPONDYLITIS [None]
  - SYSTEMIC CANDIDA [None]
